FAERS Safety Report 19452139 (Version 1)
Quarter: 2021Q2

REPORT INFORMATION
  Report Type: Spontaneous
  Country: GB (occurrence: GB)
  Receive Date: 20210623
  Receipt Date: 20210623
  Transmission Date: 20210717
  Serious: No
  Sender: FDA-Public Use
  Company Number: None

PATIENT
  Age: 33 Year
  Sex: Female

DRUGS (2)
  1. SERTRALINE [Suspect]
     Active Substance: SERTRALINE HYDROCHLORIDE
     Indication: MAJOR DEPRESSION
     Dates: start: 20210301
  2. ESMETHADONE [Concomitant]
     Dates: start: 20210601

REACTIONS (3)
  - Dizziness [None]
  - Somnolence [None]
  - Panic attack [None]
